FAERS Safety Report 9678456 (Version 5)
Quarter: 2014Q1

REPORT INFORMATION
  Report Type: Report from Study
  Country: US (occurrence: US)
  Receive Date: 20131108
  Receipt Date: 20140120
  Transmission Date: 20141002
  Serious: Yes (Death, Life-Threatening, Other)
  Sender: FDA-Public Use
  Company Number: US-BRISTOL-MYERS SQUIBB COMPANY-19426154

PATIENT
  Age: 70 Year
  Sex: Male

DRUGS (1)
  1. YERVOY [Suspect]
     Indication: METASTATIC MALIGNANT MELANOMA
     Dosage: 300MGX2DOSES 21DAYS
     Route: 042
     Dates: start: 20130712, end: 20130802

REACTIONS (5)
  - Colitis [Fatal]
  - Malignant neoplasm progression [Fatal]
  - Hypoalbuminaemia [Unknown]
  - Renal impairment [Unknown]
  - Hepatic function abnormal [Unknown]
